FAERS Safety Report 25007179 (Version 1)
Quarter: 2025Q1

REPORT INFORMATION
  Report Type: Spontaneous
  Country: IT (occurrence: IT)
  Receive Date: 20250225
  Receipt Date: 20250225
  Transmission Date: 20250409
  Serious: Yes (Hospitalization)
  Sender: AUROBINDO
  Company Number: IT-MINISAL02-1024454

PATIENT
  Age: 75 Year
  Sex: Male

DRUGS (1)
  1. ZOLPIDEM [Suspect]
     Active Substance: ZOLPIDEM TARTRATE
     Indication: Product used for unknown indication
     Route: 048
     Dates: start: 20250131, end: 20250131

REACTIONS (5)
  - Confusional state [Not Recovered/Not Resolved]
  - Somnolence [Not Recovered/Not Resolved]
  - Sopor [Recovering/Resolving]
  - Speech disorder [Not Recovered/Not Resolved]
  - Intentional overdose [Not Recovered/Not Resolved]

NARRATIVE: CASE EVENT DATE: 20250131
